FAERS Safety Report 16822153 (Version 2)
Quarter: 2020Q1

REPORT INFORMATION
  Report Type: Spontaneous
  Country: US (occurrence: US)
  Receive Date: 20190918
  Receipt Date: 20200214
  Transmission Date: 20200409
  Serious: No
  Sender: FDA-Public Use
  Company Number: US-PFIZER INC-2019399573

PATIENT
  Age: 64 Year
  Sex: Female

DRUGS (3)
  1. XELJANZ XR [Suspect]
     Active Substance: TOFACITINIB CITRATE
     Indication: RHEUMATOID ARTHRITIS
     Dosage: 11 MG, ONCE DAILY
     Route: 048
     Dates: start: 20180911
  2. XELJANZ XR [Suspect]
     Active Substance: TOFACITINIB CITRATE
     Dosage: 11 MG, ONCE DAILY
     Route: 048
     Dates: start: 20181228
  3. COLCHICINE. [Concomitant]
     Active Substance: COLCHICINE
     Indication: CHONDROCALCINOSIS PYROPHOSPHATE
     Dosage: 0.6 MG, UNK

REACTIONS (1)
  - Oral herpes [Recovered/Resolved]
